FAERS Safety Report 5583845-4 (Version None)
Quarter: 2008Q1

REPORT INFORMATION
  Report Type: 
  Country: None (occurrence: None)
  Receive Date: 20080108
  Receipt Date: 20080104
  Transmission Date: 20080703
  Serious: Yes (Hospitalization)
  Sender: FDA-Public Use
  Company Number: PHRM2007FR02763

PATIENT
  Age: 32 Year
  Sex: Male
  Weight: 62 kg

DRUGS (1)
  1. LAMISIL [Suspect]
     Indication: ONYCHOMYCOSIS
     Dosage: 250 MG, QD
     Route: 048
     Dates: start: 20070918, end: 20071011

REACTIONS (7)
  - AGRANULOCYTOSIS [None]
  - ASTHENIA [None]
  - GINGIVITIS [None]
  - HIV TEST POSITIVE [None]
  - NEUTROPHIL COUNT DECREASED [None]
  - PYREXIA [None]
  - RHINITIS [None]
